FAERS Safety Report 21829241 (Version 2)
Quarter: 2023Q1

REPORT INFORMATION
  Report Type: Spontaneous
  Country: DE (occurrence: None)
  Receive Date: 20230106
  Receipt Date: 20230123
  Transmission Date: 20230417
  Serious: Yes (Life-Threatening, Other)
  Sender: FDA-Public Use
  Company Number: DE-Hikma Pharmaceuticals USA Inc.-DE-H14001-22-03335

PATIENT
  Sex: Male
  Weight: 88 kg

DRUGS (6)
  1. DOCETAXEL [Suspect]
     Active Substance: DOCETAXEL
     Indication: Prostate cancer
     Dosage: 120 MG (FIRST DOSE)
     Route: 042
     Dates: start: 20220816
  2. DOCETAXEL [Suspect]
     Active Substance: DOCETAXEL
     Dosage: 120 MG (SECOND DOSE)
     Route: 042
     Dates: start: 20220906
  3. DOCETAXEL [Suspect]
     Active Substance: DOCETAXEL
     Dosage: 120 MG (THIRD DOSE)
     Route: 042
     Dates: start: 20220927
  4. DOCETAXEL [Suspect]
     Active Substance: DOCETAXEL
     Dosage: 120 MG (FOURTH DOSE)
     Route: 042
     Dates: start: 20221018
  5. DOCETAXEL [Suspect]
     Active Substance: DOCETAXEL
     Dosage: 120 MG (FIFTH DOSE)
     Route: 042
     Dates: start: 20221108
  6. DOCETAXEL [Suspect]
     Active Substance: DOCETAXEL
     Dosage: 120 MG (LAST DOSE)
     Route: 042
     Dates: start: 20221130

REACTIONS (1)
  - Prostatic specific antigen increased [Unknown]
